FAERS Safety Report 6510001-5 (Version None)
Quarter: 2009Q4

REPORT INFORMATION
  Report Type: 
  Country: None (occurrence: None)
  Receive Date: 20091222
  Receipt Date: 20090219
  Transmission Date: 20100525
  Serious: No
  Sender: FDA-Public Use
  Company Number: US-ABBOTT-09P-163-0558678-00

PATIENT
  Sex: Male
  Weight: 22.246 kg

DRUGS (1)
  1. OMNICEF [Suspect]
     Indication: SINUSITIS
     Route: 050
     Dates: start: 20090118, end: 20090128

REACTIONS (1)
  - URTICARIA [None]
